FAERS Safety Report 16898225 (Version 1)
Quarter: 2019Q4

REPORT INFORMATION
  Report Type: Spontaneous
  Country: ES (occurrence: ES)
  Receive Date: 20191009
  Receipt Date: 20191009
  Transmission Date: 20200122
  Serious: Yes (Hospitalization)
  Sender: FDA-Public Use
  Company Number: ES-SUN PHARMACEUTICAL INDUSTRIES LTD-2019RR-222921

PATIENT
  Age: 86 Year
  Sex: Male
  Weight: 70 kg

DRUGS (3)
  1. CARBIDOPA AND LEVODOPA [Concomitant]
     Active Substance: CARBIDOPA\LEVODOPA
     Indication: PARKINSON^S DISEASE
     Dosage: 1 DOSAGE FORM, TID
     Route: 048
     Dates: start: 20140618
  2. OXCARBAZEPINA (2570A) [Concomitant]
     Active Substance: OXCARBAZEPINE
     Indication: EPILEPSY
     Dosage: 300 MILLIGRAM, BID
     Route: 048
     Dates: start: 20140618
  3. LEVETIRACETAM. [Suspect]
     Active Substance: LEVETIRACETAM
     Indication: EPILEPSY
     Dosage: 3500 MILLIGRAM, DAILY, 1500-1000-500
     Route: 048
     Dates: start: 20190909

REACTIONS (4)
  - Renal impairment [Unknown]
  - Dizziness [Unknown]
  - Somnolence [Unknown]
  - Upper respiratory tract infection [Unknown]

NARRATIVE: CASE EVENT DATE: 20190910
